FAERS Safety Report 19973404 (Version 2)
Quarter: 2021Q4

REPORT INFORMATION
  Report Type: Spontaneous
  Country: US (occurrence: US)
  Receive Date: 20211020
  Receipt Date: 20211116
  Transmission Date: 20220303
  Serious: Yes (Other)
  Sender: FDA-Public Use
  Company Number: US-BEH-2021136792

PATIENT
  Sex: Female

DRUGS (2)
  1. HUMATE-P [Suspect]
     Active Substance: HUMAN COAGULATION FACTOR VIII/VON WILLEBRAND FACTOR COMPLEX
     Indication: Von Willebrand^s disease
     Dosage: 2040 RCOF,  QW AND PRN
     Route: 042
     Dates: start: 20210505
  2. HUMATE-P [Suspect]
     Active Substance: HUMAN COAGULATION FACTOR VIII/VON WILLEBRAND FACTOR COMPLEX
     Indication: Von Willebrand^s disease
     Dosage: 2040 RCOF,  QW AND PRN
     Route: 042
     Dates: start: 20210505

REACTIONS (2)
  - Muscle haemorrhage [Recovered/Resolved]
  - Menstrual disorder [Unknown]
